FAERS Safety Report 5259554-8 (Version None)
Quarter: 2007Q1

REPORT INFORMATION
  Report Type: 
  Country: None (occurrence: None)
  Receive Date: 20070306
  Receipt Date: 20070220
  Transmission Date: 20070707
  Serious: Yes (Death)
  Sender: FDA-Public Use
  Company Number: T200700239

PATIENT
  Age: 62 Year
  Sex: Male
  Weight: 106.6 kg

DRUGS (6)
  1. METHADOSE (METHADONE  HYDROCHLORIDE) TABLET, 10MG [Suspect]
     Indication: BACK PAIN
     Dosage: 1-3 TABLETS, 1-2 TIMES DAILY, ORAL
     Route: 048
     Dates: start: 20040831
  2. METHYLPREDNISOLONE [Concomitant]
  3. MAXZIDE [Concomitant]
  4. VICODIN (HYDROCODONE BITARTRATE, PARACETAMOL), 5/500 MG [Concomitant]
  5. LISINOPRIL [Concomitant]
  6. TEMAZEPAM [Concomitant]

REACTIONS (2)
  - MYOCARDIAL INFARCTION [None]
  - RESPIRATORY DISTRESS [None]
